FAERS Safety Report 21386597 (Version 2)
Quarter: 2022Q4

REPORT INFORMATION
  Report Type: Report from Study
  Country: CA (occurrence: None)
  Receive Date: 20220928
  Receipt Date: 20221014
  Transmission Date: 20230112
  Serious: Yes (Other)
  Sender: FDA-Public Use
  Company Number: CA-Merck Healthcare KGaA-9312711

PATIENT
  Age: 64 Year
  Sex: Female

DRUGS (2)
  1. MAVENCLAD [Suspect]
     Active Substance: CLADRIBINE
     Indication: Multiple sclerosis
     Dosage: YEAR ONE WEEK ONE THERAPY: TWO DOSAGE FORM ON DAYS 1 TO 3 AND ONE DOSAGE FORM ON DAYS 4 TO 5
     Route: 048
     Dates: start: 20211004
  2. MAVENCLAD [Suspect]
     Active Substance: CLADRIBINE
     Dosage: YEAR ONE WEEK FIVE THERAPY: TWO DOSAGE FORM ON DAYS 1 TO 2 AND ONE DOSAGE FORM ON DAYS 3 TO 5
     Route: 048

REACTIONS (3)
  - Bronchiectasis [Unknown]
  - Lymphocyte count decreased [Not Recovered/Not Resolved]
  - Fatigue [Unknown]

NARRATIVE: CASE EVENT DATE: 20211001
